FAERS Safety Report 17418490 (Version 5)
Quarter: 2020Q1

REPORT INFORMATION
  Report Type: Spontaneous
  Country: PL (occurrence: PL)
  Receive Date: 20200214
  Receipt Date: 20200330
  Transmission Date: 20200409
  Serious: No
  Sender: FDA-Public Use
  Company Number: PL-JNJFOC-20200209729

PATIENT
  Age: 74 Year
  Sex: Male

DRUGS (12)
  1. PARACETAMOL [Suspect]
     Active Substance: ACETAMINOPHEN
     Indication: HEADACHE
     Route: 065
  2. AGOMELATINE [Concomitant]
     Active Substance: AGOMELATINE
     Indication: ANHEDONIA
  3. KETOPROFEN. [Concomitant]
     Active Substance: KETOPROFEN
     Indication: HEADACHE
     Route: 065
  4. AMIODARONE [Concomitant]
     Active Substance: AMIODARONE
     Indication: ATRIAL FIBRILLATION
     Route: 065
  5. AMIODARONE [Concomitant]
     Active Substance: AMIODARONE
     Dosage: IN TOTAL
     Route: 065
  6. RIVAROXABAN [Concomitant]
     Active Substance: RIVAROXABAN
     Indication: ATRIAL FIBRILLATION
     Route: 065
  7. METAMIZOLE [Concomitant]
     Active Substance: METAMIZOLE
     Indication: HEADACHE
     Route: 065
  8. PROPRANOLOL [Concomitant]
     Active Substance: PROPRANOLOL HYDROCHLORIDE
     Indication: ATRIAL FIBRILLATION
     Dosage: 2 X 10 MG/DAY
     Route: 065
  9. CIPROFLOXACIN. [Concomitant]
     Active Substance: CIPROFLOXACIN
     Indication: URINARY TRACT INFECTION
     Dosage: 500 MG BEFORE BED;
     Route: 065
  10. AGOMELATINE [Concomitant]
     Active Substance: AGOMELATINE
     Indication: DEPRESSION
     Dosage: 25 MG/DAY AT BEDTIME
     Route: 065
  11. IBUPROFEN. [Concomitant]
     Active Substance: IBUPROFEN
     Indication: HEADACHE
     Route: 065
  12. OMEPRAZOLE. [Concomitant]
     Active Substance: OMEPRAZOLE
     Indication: PRODUCT USED FOR UNKNOWN INDICATION
     Route: 048

REACTIONS (1)
  - Headache [Recovered/Resolved]
